FAERS Safety Report 5385289-7 (Version None)
Quarter: 2007Q3

REPORT INFORMATION
  Report Type: 
  Country: None (occurrence: None)
  Receive Date: 20070709
  Receipt Date: 20070709
  Transmission Date: 20080115
  Serious: Yes (Life-Threatening, Hospitalization)
  Sender: FDA-Public Use
  Company Number: None

PATIENT
  Age: 24 Year
  Sex: Male
  Weight: 102.5129 kg

DRUGS (1)
  1. DILANTIN [Suspect]
     Indication: LUPUS ENCEPHALITIS
     Dosage: 100MG-TITRATE 250MG Q8HR IV
     Route: 042
     Dates: start: 20070607, end: 20070614

REACTIONS (1)
  - BLOOD COUNT ABNORMAL [None]
